FAERS Safety Report 5409831-2 (Version None)
Quarter: 2007Q3

REPORT INFORMATION
  Report Type: 
  Country: None (occurrence: None)
  Receive Date: 20070809
  Receipt Date: 20070605
  Transmission Date: 20080115
  Serious: No
  Sender: FDA-Public Use
  Company Number: FI-ASTRAZENECA-2007SE02975

PATIENT
  Age: 52 Year
  Sex: Female

DRUGS (7)
  1. SEROQUEL [Suspect]
     Indication: SCHIZOPHRENIA
     Route: 048
     Dates: start: 20060206
  2. OMEPRAZOLE [Concomitant]
  3. MOVICOL [Concomitant]
  4. SPARTOCINE [Concomitant]
  5. AKINETON [Concomitant]
  6. DIAPAM [Concomitant]
  7. TENOX [Concomitant]

REACTIONS (1)
  - NEUTROPENIA [None]
